FAERS Safety Report 13300525 (Version 1)
Quarter: 2017Q1

REPORT INFORMATION
  Report Type: Spontaneous
  Country: US (occurrence: US)
  Receive Date: 20170307
  Receipt Date: 20170307
  Transmission Date: 20170428
  Serious: No
  Sender: FDA-Public Use
  Company Number: US-TEVA-636043USA

PATIENT
  Age: 67 Year
  Sex: Male
  Weight: 80.81 kg

DRUGS (2)
  1. AMITRIPTYLINE [Concomitant]
     Active Substance: AMITRIPTYLINE
  2. GABAPENTIN. [Suspect]
     Active Substance: GABAPENTIN
     Indication: NEUROPATHY PERIPHERAL
     Dosage: 4200 MILLIGRAM DAILY;
     Route: 048
     Dates: start: 2002, end: 201505

REACTIONS (8)
  - Nervous system disorder [Unknown]
  - Drug effect decreased [Not Recovered/Not Resolved]
  - Post-traumatic neck syndrome [Unknown]
  - Road traffic accident [Unknown]
  - Drug ineffective [Unknown]
  - Gastrointestinal disorder [Unknown]
  - Off label use [Unknown]
  - Drug intolerance [Unknown]

NARRATIVE: CASE EVENT DATE: 201505
